FAERS Safety Report 13585719 (Version 2)
Quarter: 2017Q2

REPORT INFORMATION
  Report Type: Report from Study
  Country: FR (occurrence: FR)
  Receive Date: 20170526
  Receipt Date: 20170526
  Transmission Date: 20170830
  Serious: Yes (Hospitalization, Other)
  Sender: FDA-Public Use
  Company Number: FR-JNJFOC-20170522259

PATIENT
  Age: 73 Year
  Sex: Male
  Weight: 61 kg

DRUGS (13)
  1. AERIUS [Concomitant]
     Active Substance: DESLORATADINE
     Route: 048
  2. SERESTA [Concomitant]
     Active Substance: OXAZEPAM
     Route: 065
  3. TAHOR [Concomitant]
     Active Substance: ATORVASTATIN CALCIUM
     Route: 048
  4. ISOPTIN [Concomitant]
     Active Substance: VERAPAMIL HYDROCHLORIDE
     Route: 065
  5. CLOBETASOL PROPIONATE. [Concomitant]
     Active Substance: CLOBETASOL PROPIONATE
     Route: 048
  6. METHOTREXATE. [Concomitant]
     Active Substance: METHOTREXATE
     Route: 048
     Dates: start: 201105, end: 201106
  7. KARDEGIC [Concomitant]
     Active Substance: ASPIRIN LYSINE
     Route: 065
  8. TERCIAN [Concomitant]
     Active Substance: CYAMEMAZINE
     Route: 065
  9. REMICADE [Suspect]
     Active Substance: INFLIXIMAB
     Indication: PSORIASIS
     Route: 042
     Dates: start: 20160119, end: 20161024
  10. SORIATANE [Concomitant]
     Active Substance: ACITRETIN
     Route: 048
     Dates: start: 20170307
  11. BRICANYL [Concomitant]
     Active Substance: TERBUTALINE SULFATE
     Route: 048
  12. ULTIBRO [Concomitant]
     Active Substance: GLYCOPYRRONIUM\INDACATEROL
     Route: 048
  13. SORIATANE [Concomitant]
     Active Substance: ACITRETIN
     Route: 048
     Dates: start: 200905, end: 201004

REACTIONS (3)
  - Biliary colic [Recovered/Resolved]
  - Cholelithiasis [Recovered/Resolved]
  - Cholestasis [Recovered/Resolved]

NARRATIVE: CASE EVENT DATE: 201612
